FAERS Safety Report 5738266-8 (Version None)
Quarter: 2008Q2

REPORT INFORMATION
  Report Type: 
  Country: None (occurrence: None)
  Receive Date: 20080514
  Receipt Date: 20080502
  Transmission Date: 20081010
  Serious: Yes (Life-Threatening)
  Sender: FDA-Public Use
  Company Number: FR-PFIZER INC-2008039033

PATIENT
  Sex: Male

DRUGS (8)
  1. LYRICA [Suspect]
     Route: 048
  2. GEMCITABINE [Suspect]
     Indication: PANCREATIC CARCINOMA
     Dosage: TEXT:2000 UG DAILY  TDD:2000 UG
     Route: 042
  3. ALLOPURINOL [Suspect]
     Route: 048
  4. CALCIUM DOBESILATE [Suspect]
     Dosage: TEXT:2 DF DAILY EVERY DAY TDD:2 DF
     Route: 048
  5. FLUVASTATIN [Suspect]
     Indication: HYPERCHOLESTEROLAEMIA
     Dosage: TEXT:1 DF DAILY EVERY DAY TDD:1 DF
     Route: 048
  6. MOLSIDOMINE [Suspect]
     Dosage: TEXT:1 DF TID EVERY DAY TDD:3 DF
     Route: 048
  7. HYDROXYCARBAMIDE [Concomitant]
     Route: 048
     Dates: start: 20020101, end: 20070501
  8. OXALIPLATIN [Concomitant]
     Route: 042
     Dates: start: 20070524, end: 20070830

REACTIONS (2)
  - DYSPNOEA EXERTIONAL [None]
  - PULMONARY ARTERIAL HYPERTENSION [None]
